FAERS Safety Report 21861913 (Version 1)
Quarter: 2023Q1

REPORT INFORMATION
  Report Type: Spontaneous
  Country: US (occurrence: US)
  Receive Date: 20230113
  Receipt Date: 20230113
  Transmission Date: 20230418
  Serious: No
  Sender: FDA-Public Use
  Company Number: US-009507513-2301USA004408

PATIENT
  Age: 168 Day
  Sex: Male

DRUGS (6)
  1. TEMODAR [Suspect]
     Active Substance: TEMOZOLOMIDE
     Indication: Neuroblastoma
     Dosage: HIGH-DOSE
  2. TOPOTECAN [Concomitant]
     Active Substance: TOPOTECAN HYDROCHLORIDE
     Indication: Neuroblastoma
     Dosage: HIGH-DOSE
  3. CYCLOPHOSPHAMIDE [Concomitant]
     Active Substance: CYCLOPHOSPHAMIDE
     Indication: Neuroblastoma
     Dosage: HIGH-DOSE
  4. VINCRISTINE [Concomitant]
     Active Substance: VINCRISTINE
     Indication: Neuroblastoma
     Dosage: HIGH-DOSE
  5. DOXORUBICIN [Concomitant]
     Active Substance: DOXORUBICIN
     Indication: Neuroblastoma
     Dosage: HIGH-DOSE
  6. IRINOTECAN [Concomitant]
     Active Substance: IRINOTECAN
     Indication: Neuroblastoma
     Dosage: HIGH-DOSE

REACTIONS (1)
  - Product use in unapproved indication [Unknown]
